FAERS Safety Report 8779295 (Version 1)
Quarter: 2012Q4

REPORT INFORMATION
  Report Type: 
  Country: US (occurrence: US)
  Receive Date: 20120911
  Receipt Date: 20120911
  Transmission Date: 20130627
  Serious: Yes (Death)
  Sender: FDA-Public Use
  Company Number: US-ELI_LILLY_AND_COMPANY-US201209001520

PATIENT
  Sex: Male

DRUGS (3)
  1. HUMATROPE [Suspect]
     Indication: DWARFISM
     Dosage: 2.7 mg, qd
     Dates: start: 20110307
  2. TRACLEER [Concomitant]
  3. REVATIO [Concomitant]

REACTIONS (1)
  - Death [Fatal]
